FAERS Safety Report 23256258 (Version 1)
Quarter: 2023Q4

REPORT INFORMATION
  Report Type: Spontaneous
  Country: US (occurrence: US)
  Receive Date: 20231204
  Receipt Date: 20231204
  Transmission Date: 20240110
  Serious: Yes (Other)
  Sender: FDA-Public Use
  Company Number: US-UCBSA-2023056711

PATIENT
  Sex: Female

DRUGS (1)
  1. CIMZIA [Suspect]
     Active Substance: CERTOLIZUMAB PEGOL
     Indication: Psoriasis
     Dosage: 400 MILLIGRAM PER MILLILITRE, EV 4 WEEKS
     Route: 058

REACTIONS (4)
  - Squamous cell carcinoma [Unknown]
  - Impaired work ability [Unknown]
  - Hypersensitivity [Unknown]
  - Nasopharyngitis [Unknown]
